FAERS Safety Report 9292031 (Version 1)
Quarter: 2013Q2

REPORT INFORMATION
  Report Type: Spontaneous
  Country: US (occurrence: US)
  Receive Date: 20130516
  Receipt Date: 20130516
  Transmission Date: 20140414
  Serious: No
  Sender: FDA-Public Use
  Company Number: US-PFIZER INC-2013145854

PATIENT
  Age: 62 Year
  Sex: Female
  Weight: 95.24 kg

DRUGS (8)
  1. LEVOXYL [Suspect]
     Indication: THYROID DISORDER
     Dosage: 50 UG, 6X/WEEK
     Route: 048
     Dates: start: 2003
  2. LEVOXYL [Suspect]
     Dosage: UNK
     Route: 048
     Dates: end: 20130508
  3. LEVOTHYROXINE SODIUM [Suspect]
     Indication: THYROID DISORDER
     Dosage: 50 UG, 6X/WEEK
     Route: 048
     Dates: start: 20130508
  4. SYNTHROID [Suspect]
     Indication: THYROID DISORDER
     Dosage: UNK
     Route: 048
     Dates: start: 2003
  5. METOPROLOL SUCCINATE [Concomitant]
     Indication: HYPERTENSION
     Dosage: 100 MG, 1X/DAY
  6. OMEPRAZOLE [Concomitant]
     Indication: GASTROOESOPHAGEAL REFLUX DISEASE
     Dosage: UNK, 1X/DAY
  7. OMEPRAZOLE [Concomitant]
     Indication: OESOPHAGEAL SPASM
  8. ARMOUR THYROID [Concomitant]
     Indication: THYROID DISORDER
     Dosage: 60 MG, UNK

REACTIONS (3)
  - Drug ineffective [Unknown]
  - Somnolence [Unknown]
  - Weight increased [Unknown]
